FAERS Safety Report 5415458-9 (Version None)
Quarter: 2007Q3

REPORT INFORMATION
  Report Type: 
  Country: None (occurrence: None)
  Receive Date: 20070813
  Receipt Date: 20070723
  Transmission Date: 20080115
  Serious: Yes (Hospitalization)
  Sender: FDA-Public Use
  Company Number: 2007AP000703

PATIENT
  Age: 58 Year
  Sex: Female

DRUGS (13)
  1. VALPROATE SODIUM [Suspect]
     Indication: BIPOLAR DISORDER
     Dosage: 500 MG;BID; 500 MG;TAB;PO;BID; 1500 MG;TAB;PO;QD; 1000 MG;TAB;PO;QD
     Route: 048
     Dates: start: 20030101, end: 20070601
  2. VALPROATE SODIUM [Suspect]
     Indication: BIPOLAR DISORDER
     Dosage: 500 MG;BID; 500 MG;TAB;PO;BID; 1500 MG;TAB;PO;QD; 1000 MG;TAB;PO;QD
     Route: 048
     Dates: start: 20070601, end: 20070701
  3. VALPROATE SODIUM [Suspect]
     Indication: BIPOLAR DISORDER
     Dosage: 500 MG;BID; 500 MG;TAB;PO;BID; 1500 MG;TAB;PO;QD; 1000 MG;TAB;PO;QD
     Route: 048
     Dates: start: 20030101
  4. VALPROATE SODIUM [Suspect]
     Indication: BIPOLAR DISORDER
     Dosage: 500 MG;BID; 500 MG;TAB;PO;BID; 1500 MG;TAB;PO;QD; 1000 MG;TAB;PO;QD
     Route: 048
     Dates: start: 20070701
  5. TEMAZEPAM [Concomitant]
  6. TRAZODONE HCL [Concomitant]
  7. HYDROMORPHONE HCL [Concomitant]
  8. LOSARTAN POTASSIUM [Concomitant]
  9. PROCYCLIDINE HYDROCHLORIDE 2MG TAB [Concomitant]
  10. LORAZEPAM [Concomitant]
  11. DIAZEPAM [Concomitant]
  12. ACETYLSALICYLIC ACID SRT [Concomitant]
  13. ROFECOXIB [Concomitant]

REACTIONS (3)
  - CONVULSION [None]
  - DRUG LEVEL DECREASED [None]
  - NECK PAIN [None]
